FAERS Safety Report 7384521-8 (Version None)
Quarter: 2011Q1

REPORT INFORMATION
  Report Type: 
  Country: None (occurrence: None)
  Receive Date: 20110321
  Receipt Date: 20100913
  Transmission Date: 20110831
  Serious: Yes (Death, Hospitalization, Other)
  Sender: FDA-Public Use
  Company Number: THYM-1001334

PATIENT
  Age: 64 Year
  Sex: Male
  Weight: 98.3 kg

DRUGS (51)
  1. COMPAZINE [Concomitant]
  2. MEGESTROL ACETATE [Concomitant]
  3. METRONIDAZOLE [Concomitant]
  4. NEXIUM IV [Concomitant]
  5. VALTREX [Concomitant]
  6. PROMETHAZINE [Concomitant]
  7. PROPOXYPHENE (DEXTROPROPOXYPHENE) [Concomitant]
  8. TOLTERODINE TARTRATE [Concomitant]
  9. VITAMINS, OTHER COMBINATIONS [Concomitant]
  10. ALLOPURINOL [Concomitant]
  11. CIPROFLOXACIN [Concomitant]
  12. HEPARIN [Concomitant]
  13. DAUNORUBICIN (DAUNORUBICIN) [Concomitant]
  14. ETOPOSIDE [Concomitant]
  15. THYMOGLOBULIN [Suspect]
     Indication: ACUTE MYELOID LEUKAEMIA
     Dosage: 44 MG, ONCE, INTRAVENOUS; 132 MG, ONCE, INTRAVENOUS; 176 MG, ONCE, INTRAVENOUS
     Route: 042
     Dates: start: 20090816, end: 20090816
  16. THYMOGLOBULIN [Suspect]
     Indication: STEM CELL TRANSPLANT
     Dosage: 44 MG, ONCE, INTRAVENOUS; 132 MG, ONCE, INTRAVENOUS; 176 MG, ONCE, INTRAVENOUS
     Route: 042
     Dates: start: 20090816, end: 20090816
  17. THYMOGLOBULIN [Suspect]
     Indication: ACUTE MYELOID LEUKAEMIA
     Dosage: 44 MG, ONCE, INTRAVENOUS; 132 MG, ONCE, INTRAVENOUS; 176 MG, ONCE, INTRAVENOUS
     Route: 042
     Dates: start: 20090817, end: 20090817
  18. THYMOGLOBULIN [Suspect]
     Indication: STEM CELL TRANSPLANT
     Dosage: 44 MG, ONCE, INTRAVENOUS; 132 MG, ONCE, INTRAVENOUS; 176 MG, ONCE, INTRAVENOUS
     Route: 042
     Dates: start: 20090817, end: 20090817
  19. THYMOGLOBULIN [Suspect]
     Indication: ACUTE MYELOID LEUKAEMIA
     Dosage: 44 MG, ONCE, INTRAVENOUS; 132 MG, ONCE, INTRAVENOUS; 176 MG, ONCE, INTRAVENOUS
     Route: 042
     Dates: start: 20090818, end: 20090818
  20. THYMOGLOBULIN [Suspect]
     Indication: STEM CELL TRANSPLANT
     Dosage: 44 MG, ONCE, INTRAVENOUS; 132 MG, ONCE, INTRAVENOUS; 176 MG, ONCE, INTRAVENOUS
     Route: 042
     Dates: start: 20090818, end: 20090818
  21. BUSULFAN [Concomitant]
  22. BACLOFEN [Concomitant]
  23. PAROXETINE HCL [Concomitant]
  24. PENTAMIDINE (PENTAMIDINE) [Concomitant]
  25. LEVOFLOXACIN (LEVAQUIN) [Concomitant]
  26. NYSTATIN [Concomitant]
  27. FLUDROCORTISON (FLUDROCORTISONE ACETATE) [Concomitant]
  28. SODIUM POLYSTYRENEE SULFONATE (SODIUM POLYSTYRENE SULFONATE) [Concomitant]
  29. LENALIDOMIDE [Concomitant]
  30. CYTARABINE [Concomitant]
  31. LOPERAMIDE [Concomitant]
  32. NOVANTRONE [Concomitant]
  33. VFEND [Concomitant]
  34. SODIUM CHLORIDE 0.9% [Concomitant]
  35. POTASSIUM (POTASSIUM CHLORIDE) [Concomitant]
  36. PREDNISOLONE [Concomitant]
  37. MOZOBIL [Concomitant]
  38. GRANULOCYTE COLONY STIMULATING FACTOR (GRANULOCYTE COLONY STIMULATING [Concomitant]
  39. FLUDARABINE PHOSPHATE [Concomitant]
  40. METOPROLOL (METOPROLOL) [Concomitant]
  41. TACROLIMUS [Concomitant]
  42. FOLIC ACID [Concomitant]
  43. ONDANSETRON [Concomitant]
  44. VORELOXIN [Concomitant]
  45. AMBIEN [Concomitant]
  46. ATIVAN [Concomitant]
  47. LEVETIRACETAM [Concomitant]
  48. INV-AS703026 [Concomitant]
  49. CLOTRIMAZOLE W (BETAMETHASONE DIPROPIONATE) [Concomitant]
  50. FUROSEMIDE [Concomitant]
  51. LINEZOLID [Concomitant]

REACTIONS (26)
  - CHEST X-RAY ABNORMAL [None]
  - GASTROINTESTINAL DISORDER [None]
  - NEOPLASM MALIGNANT [None]
  - ASCITES [None]
  - GRANULOMA [None]
  - ACUTE MYELOID LEUKAEMIA [None]
  - GRAFT VERSUS HOST DISEASE [None]
  - PNEUMONIA [None]
  - SKIN PAPILLOMA [None]
  - LICHEN PLANUS [None]
  - ENTEROCOCCAL INFECTION [None]
  - HYPERTENSION [None]
  - BK VIRUS INFECTION [None]
  - PULMONARY OEDEMA [None]
  - PLEURAL EFFUSION [None]
  - PULMONARY CALCIFICATION [None]
  - ISCHAEMIA [None]
  - HAEMORRHAGIC DISORDER [None]
  - ASPERGILLOSIS [None]
  - TOXICITY TO VARIOUS AGENTS [None]
  - INFECTION [None]
  - CLOSTRIDIAL INFECTION [None]
  - ATELECTASIS [None]
  - CEREBRAL HAEMORRHAGE [None]
  - PULMONARY GRANULOMA [None]
  - STEM CELL TRANSPLANT [None]
